FAERS Safety Report 10168368 (Version 1)
Quarter: 2014Q2

REPORT INFORMATION
  Report Type: Spontaneous
  Country: US (occurrence: US)
  Receive Date: 20140513
  Receipt Date: 20140513
  Transmission Date: 20141212
  Serious: Yes (Hospitalization)
  Sender: FDA-Public Use
  Company Number: PHHY2014US054574

PATIENT
  Age: 16 Year
  Sex: Female

DRUGS (6)
  1. VALPROIC ACID [Suspect]
     Indication: MANIA
     Dosage: 1750 MG, PER DAY
  2. OLANZAPINE [Suspect]
     Indication: MANIA
     Dosage: 20 MG, DAILY
  3. OLANZAPINE [Suspect]
     Dosage: 5 MG, PER DAY
  4. LORAZEPAM [Suspect]
     Indication: MANIA
     Dosage: 1 MG, TID
  5. LORAZEPAM [Suspect]
     Dosage: 1 MG, TID
  6. QUETIAPINE [Suspect]
     Indication: MANIA
     Dosage: 100 MG, QD

REACTIONS (16)
  - Rash [Unknown]
  - Hypersomnia [Unknown]
  - Agitation [Unknown]
  - Aggression [Unknown]
  - Affect lability [Unknown]
  - Akathisia [Recovered/Resolved]
  - Muscle rigidity [Recovered/Resolved]
  - Hyperprolactinaemia [Recovered/Resolved]
  - Mania [Unknown]
  - Autonomic nervous system imbalance [Unknown]
  - Tachycardia [Unknown]
  - Hypertension [Unknown]
  - Confusional state [Unknown]
  - Dysarthria [Unknown]
  - Enuresis [Unknown]
  - Drug ineffective [Unknown]
